FAERS Safety Report 20945209 (Version 1)
Quarter: 2022Q2

REPORT INFORMATION
  Report Type: Spontaneous
  Country: US (occurrence: None)
  Receive Date: 20220609
  Receipt Date: 20220609
  Transmission Date: 20220721
  Serious: Yes (Other)
  Sender: FDA-Public Use
  Company Number: None

PATIENT
  Age: 66 Year
  Sex: Female
  Weight: 117.9 kg

DRUGS (2)
  1. PROLIA [Suspect]
     Active Substance: DENOSUMAB
     Indication: Osteoporosis
     Dosage: OTHER FREQUENCY : ONCE;?
     Route: 058
     Dates: start: 20220516, end: 20220516
  2. PROLIA [Concomitant]
     Active Substance: DENOSUMAB
     Dates: start: 20220516, end: 20220516

REACTIONS (3)
  - Arthralgia [None]
  - Rash [None]
  - Rash [None]

NARRATIVE: CASE EVENT DATE: 20220523
